FAERS Safety Report 5635091-3 (Version None)
Quarter: 2008Q1

REPORT INFORMATION
  Report Type: 
  Country: None (occurrence: None)
  Receive Date: 20080222
  Receipt Date: 20080212
  Transmission Date: 20080703
  Serious: Yes (Hospitalization)
  Sender: FDA-Public Use
  Company Number: IT-GILEAD-2008-0015408

PATIENT
  Age: 50 Year
  Sex: Male

DRUGS (4)
  1. VIREAD [Suspect]
  2. EFAVIRENZ [Suspect]
  3. LAMIVUDINE [Suspect]
  4. PRAVASTATIN [Concomitant]

REACTIONS (1)
  - REVERSIBLE POSTERIOR LEUKOENCEPHALOPATHY SYNDROME [None]
